FAERS Safety Report 12944508 (Version 1)
Quarter: 2016Q4

REPORT INFORMATION
  Report Type: Spontaneous
  Country: US (occurrence: US)
  Receive Date: 20161115
  Receipt Date: 20161115
  Transmission Date: 20170207
  Serious: Yes (Disabling)
  Sender: FDA-Public Use
  Company Number: None

PATIENT
  Sex: Female

DRUGS (1)
  1. PREDISONE [Suspect]
     Active Substance: PREDNISONE

REACTIONS (2)
  - Maternal drugs affecting foetus [None]
  - Renal fusion anomaly [None]

NARRATIVE: CASE EVENT DATE: 20160317
